FAERS Safety Report 6097157-6 (Version None)
Quarter: 2009Q1

REPORT INFORMATION
  Report Type: 
  Country: None (occurrence: None)
  Receive Date: 20090225
  Receipt Date: 20090209
  Transmission Date: 20090719
  Serious: Yes (Death)
  Sender: FDA-Public Use
  Company Number: 2009S1002316

PATIENT
  Age: 3 Decade
  Sex: Female

DRUGS (3)
  1. ATENOLOL [Suspect]
     Dosage: 300 MG; ONCE
  2. PILSICAINIDE (PILSICAINIDE) [Suspect]
     Dosage: 300 MG; ONCE
  3. ASPIRIN [Concomitant]

REACTIONS (6)
  - ARRHYTHMIA [None]
  - CARDIO-RESPIRATORY ARREST [None]
  - COLLAPSE OF LUNG [None]
  - OVERDOSE [None]
  - POISONING DELIBERATE [None]
  - TUBULOINTERSTITIAL NEPHRITIS [None]
